FAERS Safety Report 13025476 (Version 1)
Quarter: 2016Q4

REPORT INFORMATION
  Report Type: Spontaneous
  Country: US (occurrence: US)
  Receive Date: 20161214
  Receipt Date: 20161214
  Transmission Date: 20170207
  Serious: Yes (Hospitalization)
  Sender: FDA-Public Use
  Company Number: US-ROCHE-1866949

PATIENT
  Age: 72 Year
  Sex: Female

DRUGS (6)
  1. PROCRIT [Suspect]
     Active Substance: ERYTHROPOIETIN
     Indication: HAEMOGLOBIN ABNORMAL
     Route: 065
  2. TAXOL [Suspect]
     Active Substance: PACLITAXEL
     Indication: BREAST CANCER
     Route: 065
     Dates: start: 200409
  3. ADRIAMYCIN [Suspect]
     Active Substance: DOXORUBICIN HYDROCHLORIDE
     Indication: BREAST CANCER
     Route: 065
     Dates: start: 200409
  4. CYTOXAN [Suspect]
     Active Substance: CYCLOPHOSPHAMIDE
     Indication: BREAST CANCER
     Route: 065
     Dates: start: 200409
  5. NEULASTA [Suspect]
     Active Substance: PEGFILGRASTIM
     Indication: NEUTROPENIA
     Route: 065
     Dates: start: 200409
  6. HERCEPTIN [Suspect]
     Active Substance: TRASTUZUMAB
     Indication: BREAST CANCER
     Route: 065
     Dates: start: 200512, end: 200512

REACTIONS (3)
  - Febrile neutropenia [Unknown]
  - Interstitial lung disease [Not Recovered/Not Resolved]
  - Rheumatoid arthritis [Unknown]
